FAERS Safety Report 4602908-0 (Version None)
Quarter: 2005Q1

REPORT INFORMATION
  Report Type: 
  Country: None (occurrence: None)
  Receive Date: 20050309
  Receipt Date: 20050228
  Transmission Date: 20050727
  Serious: Yes (Hospitalization)
  Sender: FDA-Public Use
  Company Number: DE-GLAXOSMITHKLINE-D0046021A

PATIENT
  Age: 58 Year
  Sex: Male
  Weight: 70 kg

DRUGS (5)
  1. HYCAMTIN [Suspect]
     Indication: BRONCHIAL CARCINOMA
     Dosage: 2.76MG PER DAY
     Route: 042
     Dates: start: 20050207, end: 20050211
  2. CARBAMAZEPINE [Concomitant]
     Indication: EPILEPSY
     Dosage: 600MG PER DAY
     Route: 048
  3. DURAGESIC-100 [Concomitant]
     Indication: PAIN
     Route: 062
  4. CARBOPLATIN [Concomitant]
     Indication: BRONCHIAL CARCINOMA
     Route: 065
  5. ETOPOSIDE [Concomitant]
     Indication: BRONCHIAL CARCINOMA
     Route: 065

REACTIONS (4)
  - HYPOAESTHESIA [None]
  - PARAESTHESIA [None]
  - PARESIS [None]
  - POLYNEUROPATHY [None]
